FAERS Safety Report 15181014 (Version 1)
Quarter: 2018Q3

REPORT INFORMATION
  Report Type: Report from Study
  Country: None (occurrence: GB)
  Receive Date: 20180723
  Receipt Date: 20180723
  Transmission Date: 20181010
  Serious: Yes (Death, Hospitalization, Disabling)
  Sender: FDA-Public Use
  Company Number: GB-ABBVIE-18K-167-2426469-00

PATIENT
  Age: 56 Year
  Sex: Male

DRUGS (2)
  1. HUMIRA [Suspect]
     Active Substance: ADALIMUMAB
     Indication: RHEUMATOID ARTHRITIS
     Route: 058
     Dates: start: 20070410
  2. METHOTREXATE. [Concomitant]
     Active Substance: METHOTREXATE
     Indication: PRODUCT USED FOR UNKNOWN INDICATION

REACTIONS (16)
  - Pneumonia [Fatal]
  - Hypotension [Fatal]
  - Hypoperfusion [Fatal]
  - Bacterial toxaemia [Fatal]
  - Pneumothorax [Fatal]
  - Acidosis [Fatal]
  - Neutropenia [Fatal]
  - Lung infection [Fatal]
  - Hyponatraemia [Fatal]
  - Hypoglycaemia [Fatal]
  - Respiratory failure [Fatal]
  - Pulmonary sepsis [Fatal]
  - Acute kidney injury [Fatal]
  - Melaena [Fatal]
  - Hypochromasia [Fatal]
  - Leukopenia [Fatal]

NARRATIVE: CASE EVENT DATE: 20170920
